FAERS Safety Report 13885251 (Version 5)
Quarter: 2019Q2

REPORT INFORMATION
  Report Type: Report from Study
  Country: US (occurrence: US)
  Receive Date: 20170821
  Receipt Date: 20190528
  Transmission Date: 20190711
  Serious: Yes (Other)
  Sender: FDA-Public Use
  Company Number: PHHY2017US057629

PATIENT
  Age: 48 Year
  Sex: Female

DRUGS (3)
  1. MARIJUANA [Concomitant]
     Active Substance: CANNABIS SATIVA SUBSP. INDICA TOP
     Indication: PAIN
     Dosage: UNK
     Route: 065
     Dates: start: 20170320
  2. VENLAFAXINE [Concomitant]
     Active Substance: VENLAFAXINE HYDROCHLORIDE
     Indication: DEPRESSION
     Dosage: UNK
     Route: 065
     Dates: start: 20161012
  3. GILENYA [Suspect]
     Active Substance: FINGOLIMOD HYDROCHLORIDE
     Indication: MULTIPLE SCLEROSIS
     Dosage: QD
     Route: 048

REACTIONS (26)
  - Angioedema [Recovered/Resolved]
  - Cough [Recovered/Resolved]
  - Hypoaesthesia [Unknown]
  - Infected bite [Recovered/Resolved]
  - Tinea pedis [Recovered/Resolved]
  - Bronchitis [Recovered/Resolved]
  - Carpal tunnel syndrome [Unknown]
  - Palpitations [Unknown]
  - Chronic obstructive pulmonary disease [Unknown]
  - Telangiectasia [Unknown]
  - Alopecia [Unknown]
  - Dyspepsia [Unknown]
  - Bronchitis [Recovered/Resolved]
  - Bronchitis [Recovered/Resolved]
  - Hyperhidrosis [Unknown]
  - Anxiety [Recovered/Resolved]
  - Otitis media acute [Recovered/Resolved]
  - Onychomycosis [Unknown]
  - Haemangioma of breast [Unknown]
  - Seborrhoeic keratosis [Unknown]
  - Dysaesthesia [Recovered/Resolved]
  - Solar lentigo [Unknown]
  - Varicose vein [Unknown]
  - Seborrhoeic dermatitis [Unknown]
  - Muscle strain [Recovered/Resolved]
  - Folliculitis [Unknown]

NARRATIVE: CASE EVENT DATE: 20150203
